FAERS Safety Report 4944767-2 (Version None)
Quarter: 2006Q1

REPORT INFORMATION
  Report Type: 
  Country: None (occurrence: None)
  Receive Date: 20060113
  Receipt Date: 20050524
  Transmission Date: 20060701
  Serious: Yes (Other)
  Sender: FDA-Public Use
  Company Number: HQWYE572406OCT04

PATIENT
  Age: 59 Year
  Sex: Female
  Weight: 86.26 kg

DRUGS (3)
  1. PREMPRO [Suspect]
     Indication: MENORRHAGIA
     Dosage: ORAL
     Route: 048
     Dates: start: 19970201
  2. PREMARIN [Suspect]
     Indication: MENORRHAGIA
     Dosage: ORAL
     Route: 048
     Dates: start: 19931001
  3. PROVERA [Suspect]
     Indication: MENORRHAGIA
     Dosage: ORAL
     Route: 048
     Dates: start: 19931001, end: 19970201

REACTIONS (1)
  - OVARIAN CANCER [None]
